FAERS Safety Report 25774262 (Version 1)
Quarter: 2025Q3

REPORT INFORMATION
  Report Type: Spontaneous
  Country: US (occurrence: US)
  Receive Date: 20250908
  Receipt Date: 20250908
  Transmission Date: 20251020
  Serious: No
  Sender: VERTEX
  Company Number: US-VERTEX PHARMACEUTICALS-2025-014329

PATIENT
  Age: 89 Year
  Sex: Female

DRUGS (1)
  1. JOURNAVX [Suspect]
     Active Substance: SUZETRIGINE
     Indication: Product used for unknown indication
     Route: 048
     Dates: start: 2025

REACTIONS (5)
  - Urinary incontinence [Unknown]
  - Heart rate increased [Unknown]
  - Blood pressure increased [Unknown]
  - Chills [Unknown]
  - Feeling hot [Unknown]

NARRATIVE: CASE EVENT DATE: 20250827
